FAERS Safety Report 26119513 (Version 1)
Quarter: 2025Q4

REPORT INFORMATION
  Report Type: Spontaneous
  Country: CN (occurrence: CN)
  Receive Date: 20251204
  Receipt Date: 20251204
  Transmission Date: 20260119
  Serious: Yes (Hospitalization, Other)
  Sender: IDORSIA PHARMACEUTICALS
  Company Number: CN-SIMCERE CO., LTD.-2025XSYY4936

PATIENT
  Age: 34 Year
  Sex: Male

DRUGS (1)
  1. QUVIVIQ [Suspect]
     Active Substance: DARIDOREXANT
     Indication: Poor quality sleep
     Dosage: 7 TABLETS OF 50 MG, SINGLE
     Route: 048
     Dates: start: 20251125, end: 20251125

REACTIONS (2)
  - Coma [Recovering/Resolving]
  - Overdose [Recovering/Resolving]

NARRATIVE: CASE EVENT DATE: 20251125
